FAERS Safety Report 4492038-3 (Version None)
Quarter: 2004Q4

REPORT INFORMATION
  Report Type: 
  Country: None (occurrence: None)
  Receive Date: 20041029
  Receipt Date: 20041025
  Transmission Date: 20050328
  Serious: Yes (Hospitalization)
  Sender: FDA-Public Use
  Company Number: HQ2356617MAY2002

PATIENT
  Age: 12 Month
  Sex: Male

DRUGS (1)
  1. CHILDREN'S ADVIL [Suspect]
     Indication: PYREXIA
     Dosage: 1 DOSE PER KILOGRAM
     Route: 048
     Dates: start: 20020408, end: 20020413

REACTIONS (4)
  - FASCIITIS [None]
  - INFLAMMATION [None]
  - SCAR [None]
  - STAPHYLOCOCCAL INFECTION [None]
